FAERS Safety Report 9412557 (Version 1)
Quarter: 2013Q2

REPORT INFORMATION
  Report Type: Spontaneous
  Country: US (occurrence: None)
  Receive Date: 20130619
  Receipt Date: 20130619
  Transmission Date: 20140414
  Serious: Yes (Other)
  Sender: FDA-Public Use
  Company Number: ENT 2013-0075

PATIENT
  Age: 76 Year
  Sex: Male

DRUGS (1)
  1. COMTAN (COMTESS) (ENTACAPONE) [Suspect]
     Dosage: STOPPED

REACTIONS (1)
  - Dementia [None]
